FAERS Safety Report 24969614 (Version 1)
Quarter: 2025Q1

REPORT INFORMATION
  Report Type: Spontaneous
  Country: US (occurrence: None)
  Receive Date: 20250214
  Receipt Date: 20250214
  Transmission Date: 20250408
  Serious: Yes (Hospitalization)
  Sender: FDA-CTU
  Company Number: None

PATIENT
  Age: 73 Year
  Sex: Male
  Weight: 119.8 kg

DRUGS (5)
  1. FLUOROURACIL [Suspect]
     Active Substance: FLUOROURACIL
     Dates: start: 20250206
  2. CAMPTOSAR [Suspect]
     Active Substance: IRINOTECAN HYDROCHLORIDE
     Dates: end: 20250206
  3. LEUCOVORIN CALCIUM [Suspect]
     Active Substance: LEUCOVORIN CALCIUM
     Dates: end: 20250206
  4. OXALIPLATIN [Suspect]
     Active Substance: OXALIPLATIN
     Dates: end: 20250206
  5. ELOXATIN [Suspect]
     Active Substance: OXALIPLATIN

REACTIONS (8)
  - Dyspnoea [None]
  - Hyperhidrosis [None]
  - Chills [None]
  - Tremor [None]
  - Pyrexia [None]
  - Blood pressure decreased [None]
  - White blood cell count increased [None]
  - Pneumonia [None]

NARRATIVE: CASE EVENT DATE: 20250207
